FAERS Safety Report 7075347-3 (Version None)
Quarter: 2010Q4

REPORT INFORMATION
  Report Type: 
  Country: None (occurrence: None)
  Receive Date: 20101030
  Receipt Date: 20101021
  Transmission Date: 20110411
  Serious: Yes (Hospitalization)
  Sender: FDA-Public Use
  Company Number: US-WYE-H16845410

PATIENT
  Sex: Female
  Weight: 68.1 kg

DRUGS (5)
  1. PRISTIQ [Suspect]
     Indication: DEPRESSION
     Dates: start: 20100101, end: 20100101
  2. PROTONIX [Concomitant]
     Indication: GASTROOESOPHAGEAL REFLUX DISEASE
     Dosage: UNKNOWN
  3. KLONOPIN [Concomitant]
     Indication: ANXIETY
     Dosage: UNKNOWN
  4. LYRICA [Concomitant]
     Indication: FIBROMYALGIA
     Dosage: 50 MG, FREQUENCY NOT SPECIFIED
  5. XANAX [Concomitant]
     Indication: ANXIETY
     Dosage: UNKNOWN

REACTIONS (2)
  - AMNESIA [None]
  - DRUG INEFFECTIVE [None]
